FAERS Safety Report 10167697 (Version 2)
Quarter: 2014Q2

REPORT INFORMATION
  Report Type: Spontaneous
  Country: JP (occurrence: JP)
  Receive Date: 20140512
  Receipt Date: 20140528
  Transmission Date: 20141212
  Serious: Yes (Hospitalization)
  Sender: FDA-Public Use
  Company Number: JP-PFIZER INC-2014126786

PATIENT
  Sex: Female

DRUGS (1)
  1. NASANYL [Suspect]
     Indication: ENDOMETRIOSIS
     Dosage: UNK
     Route: 045

REACTIONS (1)
  - Lip and/or oral cavity cancer [Unknown]
